FAERS Safety Report 15862708 (Version 1)
Quarter: 2019Q1

REPORT INFORMATION
  Report Type: Spontaneous
  Country: US (occurrence: US)
  Receive Date: 20190124
  Receipt Date: 20190124
  Transmission Date: 20190417
  Serious: No
  Sender: FDA-Public Use
  Company Number: US-009507513-1901USA006234

PATIENT
  Sex: Female

DRUGS (1)
  1. NEXPLANON [Suspect]
     Active Substance: ETONOGESTREL
     Indication: CONTRACEPTION
     Dosage: 1 DOSAGE FORM
     Route: 059

REACTIONS (7)
  - Hypoaesthesia [Unknown]
  - Implant site pain [Unknown]
  - Pain in extremity [Unknown]
  - Pruritus [Unknown]
  - Rash [Unknown]
  - Complication associated with device [Unknown]
  - Contusion [Unknown]
